FAERS Safety Report 5838896-9 (Version None)
Quarter: 2008Q3

REPORT INFORMATION
  Report Type: 
  Country: None (occurrence: None)
  Receive Date: 20080808
  Receipt Date: 20080730
  Transmission Date: 20090109
  Serious: Yes (Hospitalization, Other)
  Sender: FDA-Public Use
  Company Number: PHHY2008JP15159

PATIENT
  Age: 75 Year
  Sex: Male

DRUGS (1)
  1. DICLOFENAC SODIUM [Suspect]
     Indication: THORACIC VERTEBRAL FRACTURE
     Dosage: 75 MG/DAY
     Route: 048

REACTIONS (6)
  - ABDOMINAL PAIN [None]
  - ABDOMINAL RIGIDITY [None]
  - GASTROINTESTINAL OEDEMA [None]
  - ILEECTOMY [None]
  - PERITONITIS [None]
  - SMALL INTESTINAL PERFORATION [None]
